FAERS Safety Report 16476344 (Version 3)
Quarter: 2024Q1

REPORT INFORMATION
  Report Type: Spontaneous
  Country: AT (occurrence: AT)
  Receive Date: 20190626
  Receipt Date: 20240306
  Transmission Date: 20240410
  Serious: Yes (Other)
  Sender: FDA-Public Use
  Company Number: AT-ROCHE-2333808

PATIENT
  Age: 59 Year
  Sex: Female
  Weight: 65 kg

DRUGS (79)
  1. XGEVA [Suspect]
     Active Substance: DENOSUMAB
     Indication: Breast cancer
     Dosage: 120 MILLIGRAM, Q4WK
     Route: 058
     Dates: start: 20180628
  2. HERCEPTIN [Suspect]
     Active Substance: TRASTUZUMAB
     Indication: HER2 positive breast cancer
     Dosage: 8 MILLIGRAM/KILOGRAM, Q3WK
     Route: 041
     Dates: start: 20180627, end: 20180627
  3. HERCEPTIN [Suspect]
     Active Substance: TRASTUZUMAB
     Dosage: 520 MILLIGRAM, Q3WK
     Route: 041
     Dates: start: 20180717, end: 20181217
  4. HERCEPTIN [Suspect]
     Active Substance: TRASTUZUMAB
     Dosage: 6 MILLIGRAM/KILOGRAM, Q4WK
     Route: 041
     Dates: start: 20190205, end: 20201111
  5. HERCEPTIN [Suspect]
     Active Substance: TRASTUZUMAB
     Dosage: 6 MILLIGRAM/KILOGRAM, Q4WK
     Route: 041
     Dates: start: 20201202, end: 20220422
  6. LETROZOLE [Suspect]
     Active Substance: LETROZOLE
     Indication: HER2 positive breast cancer
     Dosage: 2.5 MILLIGRAM, QD
     Route: 048
     Dates: start: 20181130, end: 202211
  7. TAXOTERE [Suspect]
     Active Substance: DOCETAXEL
     Indication: HER2 positive breast cancer
     Dosage: 75 MILLIGRAM/SQ. METER, Q3WK (MOST RECENT DOSE 05/NOV/2018)
     Route: 042
     Dates: start: 20180627
  8. PERJETA [Suspect]
     Active Substance: PERTUZUMAB
     Indication: HER2 positive breast cancer
     Dosage: 840 MILLIGRAM, Q3WK
     Route: 042
     Dates: start: 20180627, end: 20180627
  9. PERJETA [Suspect]
     Active Substance: PERTUZUMAB
     Dosage: 420 MILLIGRAM, Q3WK
     Route: 042
     Dates: start: 20190205, end: 20201111
  10. PERJETA [Suspect]
     Active Substance: PERTUZUMAB
     Dosage: 420 MILLIGRAM, Q3WK
     Route: 042
     Dates: start: 20201202, end: 20220422
  11. PERJETA [Suspect]
     Active Substance: PERTUZUMAB
     Dosage: 420 MILLIGRAM, Q3WK
     Route: 042
     Dates: start: 20180717, end: 20181217
  12. DIOSMIN\HESPERIDIN [Concomitant]
     Active Substance: DIOSMIN\HESPERIDIN
     Dosage: ONGOING = CHECKED
     Dates: start: 20190509
  13. ESOMEPRAZOLE [Concomitant]
     Active Substance: ESOMEPRAZOLE
     Dosage: UNK
     Dates: start: 20180625
  14. ESOMEPRAZOLE [Concomitant]
     Active Substance: ESOMEPRAZOLE
     Dosage: UNK
     Dates: start: 20180719
  15. CLINDAMYCIN [Concomitant]
     Active Substance: CLINDAMYCIN
     Dosage: UNK
     Dates: start: 20190205
  16. DEXAMETHASONE [Concomitant]
     Active Substance: DEXAMETHASONE
     Dosage: UNK
     Dates: start: 20180626
  17. DIPHENHYDRAMINE HYDROCHLORIDE [Concomitant]
     Active Substance: DIPHENHYDRAMINE HYDROCHLORIDE
     Dosage: UNK
     Dates: start: 20180626
  18. VOLTAREN [Concomitant]
     Active Substance: DICLOFENAC SODIUM
     Dosage: UNK
     Dates: start: 20180816
  19. CHOLECALCIFEROL [Concomitant]
     Active Substance: CHOLECALCIFEROL
     Dosage: UNK
     Dates: start: 20180629
  20. ZOFRAN [Concomitant]
     Active Substance: ONDANSETRON HYDROCHLORIDE
     Dosage: UNK
     Dates: start: 20180626
  21. FLUCONAZOLE [Concomitant]
     Active Substance: FLUCONAZOLE
  22. XIPAMIDE [Concomitant]
     Active Substance: XIPAMIDE
  23. FRAGMIN [Concomitant]
     Active Substance: DALTEPARIN SODIUM
  24. EMEND [Concomitant]
     Active Substance: APREPITANT
  25. PERFALGAN [Concomitant]
     Active Substance: ACETAMINOPHEN
  26. FENTANYL [Concomitant]
     Active Substance: FENTANYL\FENTANYL CITRATE
  27. TRAZODONE HYDROCHLORIDE [Concomitant]
     Active Substance: TRAZODONE HYDROCHLORIDE
  28. CLONIDINE [Concomitant]
     Active Substance: CLONIDINE
  29. NYSTATIN [Concomitant]
     Active Substance: NYSTATIN
  30. MORPHINE [Concomitant]
     Active Substance: MORPHINE
  31. SEROQUEL [Concomitant]
     Active Substance: QUETIAPINE FUMARATE
  32. METASOL [Concomitant]
     Active Substance: BENZOPHENONE\HYDROQUINONE
  33. POTASSIUM CHLORIDE [Concomitant]
     Active Substance: POTASSIUM CHLORIDE
  34. GASTROMIRO [Concomitant]
  35. NALOXEGOL OXALATE [Concomitant]
     Active Substance: NALOXEGOL OXALATE
  36. CLONIDINE [Concomitant]
     Active Substance: CLONIDINE
  37. Dormicum [Concomitant]
  38. FUROSEMIDE\SPIRONOLACTONE [Concomitant]
     Active Substance: FUROSEMIDE\SPIRONOLACTONE
  39. NEOSTIGMINE [Concomitant]
     Active Substance: NEOSTIGMINE
  40. POLYETHYLENE GLYCOL 4000 [Concomitant]
     Active Substance: POLYETHYLENE GLYCOL 4000
  41. PROPOFOL [Concomitant]
     Active Substance: PROPOFOL
  42. BERODUALIN [Concomitant]
  43. ESOMEPRAZOLE [Concomitant]
     Active Substance: ESOMEPRAZOLE
     Dosage: UNK
     Dates: start: 20180625
  44. CEFEPIME [Concomitant]
     Active Substance: CEFEPIME HYDROCHLORIDE
  45. SUFENTANIL [Concomitant]
     Active Substance: SUFENTANIL
  46. VALERIAN [Concomitant]
     Active Substance: VALERIAN
  47. Novalgin [Concomitant]
  48. ELOZELL [Concomitant]
  49. LASIX [Concomitant]
     Active Substance: FUROSEMIDE
  50. PANTOPRAZOLE SODIUM [Concomitant]
     Active Substance: PANTOPRAZOLE SODIUM
  51. ALBUMIN HUMAN [Concomitant]
     Active Substance: ALBUMIN HUMAN
  52. NOREPINEPHRINE HYDROCHLORIDE, (+/-)- [Concomitant]
     Active Substance: NOREPINEPHRINE HYDROCHLORIDE, (+/-)-
  53. Temesta [Concomitant]
  54. MAGNESIUM CARBONATE\MAGNESIUM OXIDE [Concomitant]
     Active Substance: MAGNESIUM CARBONATE\MAGNESIUM OXIDE
  55. LIPEGFILGRASTIM [Concomitant]
     Active Substance: LIPEGFILGRASTIM
  56. CEFUROXIME [Concomitant]
     Active Substance: CEFUROXIME
  57. OXAZEPAM [Concomitant]
     Active Substance: OXAZEPAM
  58. MELATONIN [Concomitant]
     Active Substance: MELATONIN
  59. ASCORBIC ACID\CALCIUM PHOSPHATE\CHOLECALCIFEROL\CITRIC ACID MONOHYDRAT [Concomitant]
     Active Substance: ASCORBIC ACID\CALCIUM PHOSPHATE\CHOLECALCIFEROL\CITRIC ACID MONOHYDRATE
  60. DEXPANTHENOL [Concomitant]
     Active Substance: DEXPANTHENOL
  61. MEROPENEM [Concomitant]
     Active Substance: MEROPENEM
  62. DIHYDRALAZINE [Concomitant]
     Active Substance: DIHYDRALAZINE
  63. ETILEFRINE HYDROCHLORIDE [Concomitant]
     Active Substance: ETILEFRINE HYDROCHLORIDE
  64. HYPOTRIT [Concomitant]
  65. LINEZOLID [Concomitant]
     Active Substance: LINEZOLID
  66. BISOPROLOL FUMARATE [Concomitant]
     Active Substance: BISOPROLOL FUMARATE
  67. Acemin [Concomitant]
  68. BRICANYL [Concomitant]
     Active Substance: TERBUTALINE SULFATE
  69. Paspertin [Concomitant]
  70. SERTRALINE HYDROCHLORIDE [Concomitant]
     Active Substance: SERTRALINE HYDROCHLORIDE
  71. ACETAMINOPHEN [Concomitant]
     Active Substance: ACETAMINOPHEN
  72. FLUCLOXACILLIN [Concomitant]
     Active Substance: FLUCLOXACILLIN
  73. PULMICORT TURBUHALER [Concomitant]
     Active Substance: BUDESONIDE
  74. GENTAMICIN SULFATE [Concomitant]
     Active Substance: GENTAMICIN SULFATE
  75. Ketanest [Concomitant]
  76. ERYTHROMYCIN [Concomitant]
     Active Substance: ERYTHROMYCIN
  77. POLYETHYLENE GLYCOL 3350\POTASSIUM CHLORIDE\SODIUM BICARBONATE\SODIUM [Concomitant]
     Active Substance: POLYETHYLENE GLYCOL 3350\POTASSIUM CHLORIDE\SODIUM BICARBONATE\SODIUM CHLORIDE
  78. INDERAL [Concomitant]
     Active Substance: PROPRANOLOL HYDROCHLORIDE
  79. MELPERONE HYDROCHLORIDE [Concomitant]
     Active Substance: MELPERONE HYDROCHLORIDE

REACTIONS (3)
  - Clostridial infection [Recovered/Resolved]
  - Off label use [Unknown]
  - Diarrhoea [Recovered/Resolved]

NARRATIVE: CASE EVENT DATE: 20180628
